FAERS Safety Report 16463530 (Version 1)
Quarter: 2019Q2

REPORT INFORMATION
  Report Type: Spontaneous
  Country: PT (occurrence: ES)
  Receive Date: 20190621
  Receipt Date: 20190621
  Transmission Date: 20190711
  Serious: Yes (Other)
  Sender: FDA-Public Use
  Company Number: PT-SUNOVION-2019SUN002538

PATIENT

DRUGS (2)
  1. ZEBINIX [Suspect]
     Active Substance: ESLICARBAZEPINE ACETATE
     Indication: EPILEPSY
     Dosage: 800 MG, 2X / DAY (1-0-1)
     Route: 065
     Dates: start: 20190123, end: 20190223
  2. ZEBINIX [Suspect]
     Active Substance: ESLICARBAZEPINE ACETATE
     Dosage: 1200 MG DAILY (1-0-1/2)
     Route: 065
     Dates: start: 20190224, end: 20190524

REACTIONS (5)
  - Tachycardia [Recovered/Resolved]
  - Off label use [Recovered/Resolved]
  - Anxiety [Unknown]
  - Vertigo [Unknown]
  - Nervousness [Unknown]

NARRATIVE: CASE EVENT DATE: 20190123
